FAERS Safety Report 15651157 (Version 2)
Quarter: 2018Q4

REPORT INFORMATION
  Report Type: Report from Study
  Country: US (occurrence: US)
  Receive Date: 20181123
  Receipt Date: 20181130
  Transmission Date: 20190205
  Serious: Yes (Hospitalization)
  Sender: FDA-Public Use
  Company Number: US-TAIHO ONCOLOGY  INC-EU-2018-01727

PATIENT
  Age: 74 Year
  Sex: Male
  Weight: 102.15 kg

DRUGS (31)
  1. ATENOLOL. [Concomitant]
     Active Substance: ATENOLOL
     Dates: start: 20180927
  2. CYCLOBENZAPRINE. [Concomitant]
     Active Substance: CYCLOBENZAPRINE
  3. PRASUGREL. [Concomitant]
     Active Substance: PRASUGREL
     Dates: start: 20180927
  4. LONSURF [Suspect]
     Active Substance: TIPIRACIL HYDROCHLORIDE\TRIFLURIDINE
     Indication: COLON CANCER METASTATIC
     Dosage: COMPLETED 2 CYCLES.?CURRENT CYCLE UNKNOWN, INTERRUPTED AND RESUMED IN NOV/2018
     Route: 048
     Dates: start: 20180928
  5. ASPIRIN. [Concomitant]
     Active Substance: ASPIRIN
     Dosage: EC
     Dates: start: 20180927
  6. MAGNESIUM [Concomitant]
     Active Substance: MAGNESIUM
     Dates: start: 20180927
  7. METFORMIN [Concomitant]
     Active Substance: METFORMIN HYDROCHLORIDE
     Dates: start: 20180927
  8. ATORVASTATIN [Concomitant]
     Active Substance: ATORVASTATIN
     Dates: start: 20180927
  9. NITROGLYCER DIS [Concomitant]
     Dosage: 0.1MG/HR
     Dates: start: 20180927
  10. ATENOLOL. [Concomitant]
     Active Substance: ATENOLOL
  11. DOXYCYCLINE HYC [Concomitant]
     Active Substance: DOXYCYCLINE HYCLATE
     Dates: start: 20180927
  12. ZANTAC [Concomitant]
     Active Substance: RANITIDINE HYDROCHLORIDE
     Dates: start: 20180927
  13. ADVAIR HFA [Concomitant]
     Active Substance: FLUTICASONE PROPIONATE\SALMETEROL XINAFOATE
     Dosage: 230/21, HFA
     Dates: start: 20180927
  14. IMODIUM [Concomitant]
     Active Substance: LOPERAMIDE HYDROCHLORIDE
     Indication: NAUSEA
     Dosage: LIQ 1MG/7.5, A-D
     Dates: start: 20180927
  15. LORAZEPAM. [Concomitant]
     Active Substance: LORAZEPAM
     Dates: start: 20180927
  16. ALBUTEROL. [Concomitant]
     Active Substance: ALBUTEROL
     Dosage: NEB 0.63MG/3 - 2.5/3 ML
     Dates: start: 20180927
  17. PRASUGREL. [Concomitant]
     Active Substance: PRASUGREL
  18. SYMBICORT [Concomitant]
     Active Substance: BUDESONIDE\FORMOTEROL FUMARATE DIHYDRATE
     Dosage: NI
  19. MOXIFLOXACIN. [Concomitant]
     Active Substance: MOXIFLOXACIN
  20. HYDRALAZINE [Concomitant]
     Active Substance: HYDRALAZINE HYDROCHLORIDE
     Dates: start: 20180927
  21. ROPINIROLE. [Concomitant]
     Active Substance: ROPINIROLE
     Dosage: NI
  22. SAXAGLIPTIN [Concomitant]
     Active Substance: SAXAGLIPTIN
     Dosage: NI
  23. CLONIDINE. [Concomitant]
     Active Substance: CLONIDINE
     Dates: start: 20180927
  24. GLIPIZIDE. [Concomitant]
     Active Substance: GLIPIZIDE
     Dates: start: 20180927
  25. HYDRALAZINE [Concomitant]
     Active Substance: HYDRALAZINE HYDROCHLORIDE
  26. NEXIUM [Concomitant]
     Active Substance: ESOMEPRAZOLE MAGNESIUM
     Dates: start: 20180927
  27. PROCHLORPERAZINE. [Concomitant]
     Active Substance: PROCHLORPERAZINE
     Dates: start: 20180927
  28. TRAMADOL HCL [Concomitant]
     Active Substance: TRAMADOL HYDROCHLORIDE
     Dates: start: 20180927
  29. VITAMIN D3 [Concomitant]
     Active Substance: CHOLECALCIFEROL
     Dosage: NI
  30. FERROUS SULFATE. [Concomitant]
     Active Substance: FERROUS SULFATE
     Dates: start: 20180927
  31. ATORVASTATIN [Concomitant]
     Active Substance: ATORVASTATIN

REACTIONS (9)
  - Fatigue [Not Recovered/Not Resolved]
  - Weight decreased [Unknown]
  - Dysgeusia [Unknown]
  - Abdominal discomfort [Unknown]
  - Heart rate increased [Recovered/Resolved]
  - Hypertension [Not Recovered/Not Resolved]
  - Oxygen saturation abnormal [Not Recovered/Not Resolved]
  - Decreased appetite [Not Recovered/Not Resolved]
  - Pleural effusion [Unknown]

NARRATIVE: CASE EVENT DATE: 2018
